FAERS Safety Report 17087291 (Version 1)
Quarter: 2019Q4

REPORT INFORMATION
  Report Type: Spontaneous
  Country: US (occurrence: US)
  Receive Date: 20191128
  Receipt Date: 20191128
  Transmission Date: 20200122
  Serious: No
  Sender: FDA-Public Use
  Company Number: US-DRREDDYS-USA/USA/19/0116455

PATIENT
  Sex: Male
  Weight: 9 kg

DRUGS (2)
  1. RANITIDINE CAPSULES 150 MG [Suspect]
     Active Substance: RANITIDINE
     Indication: GASTROOESOPHAGEAL REFLUX DISEASE
     Route: 048
     Dates: start: 20180412, end: 20180531
  2. RANITIDINE CAPSULES 150 MG [Suspect]
     Active Substance: RANITIDINE
     Indication: NAUSEA

REACTIONS (3)
  - Foetal exposure during pregnancy [Unknown]
  - Hypotonia [Unknown]
  - Blood disorder [Unknown]
